FAERS Safety Report 6237261-2 (Version None)
Quarter: 2009Q2

REPORT INFORMATION
  Report Type: 
  Country: None (occurrence: None)
  Receive Date: 20090619
  Receipt Date: 20090618
  Transmission Date: 20091009
  Serious: Yes (Other)
  Sender: FDA-Public Use
  Company Number: US-RB-017020-09

PATIENT
  Age: 53 Year
  Sex: Male

DRUGS (3)
  1. SUBOXONE [Suspect]
     Dosage: 1-2 MG DAILY
     Route: 060
     Dates: start: 20090401, end: 20090528
  2. SUBOXONE [Suspect]
     Route: 060
     Dates: start: 20070101, end: 20090401
  3. INVEGA [Concomitant]
     Indication: DEPRESSION
     Dosage: DOSING INFORMATION UNKNOWN

REACTIONS (2)
  - SUICIDAL IDEATION [None]
  - WITHDRAWAL SYNDROME [None]
